FAERS Safety Report 7622898-6 (Version None)
Quarter: 2011Q3

REPORT INFORMATION
  Report Type: 
  Country: None (occurrence: None)
  Receive Date: 20110712
  Receipt Date: 20110701
  Transmission Date: 20111222
  Serious: Yes (Death, Hospitalization, Other)
  Sender: FDA-Public Use
  Company Number: KV201000364

PATIENT
  Age: 65 Year
  Sex: Male
  Weight: 84.8 kg

DRUGS (28)
  1. AMOXICILLIN [Concomitant]
  2. FLUNISOLIDE (FLUNISOLIDE) [Concomitant]
  3. FLUOCINONIDE [Concomitant]
  4. KETOTIFEN (KETOTIFEN) [Concomitant]
  5. CEFAZOLIN [Concomitant]
  6. LEVOTHYROXINE SODIUM [Concomitant]
  7. ROPINIROLE [Concomitant]
  8. BISACODYL (BISACODYL) [Concomitant]
  9. DIVALPROEX (VALPROATE SEMISODIUM) [Concomitant]
  10. METHOCARBAMOL [Concomitant]
  11. FISH OIL (FISH OIL) [Concomitant]
  12. OXYCODONE HCL [Concomitant]
  13. AMITRIPTYLINE HCL (AMITRIPTYLINE) [Concomitant]
  14. DOXEPIN HYDROCHLORIDE [Concomitant]
  15. EZETIMIBE [Concomitant]
  16. TEMAZEPAM [Concomitant]
  17. ALLOPUINOL (ALLOPUINOL) [Concomitant]
  18. FLUTICASONE PROPIONATE [Concomitant]
  19. TRAZODONE HCL [Concomitant]
  20. RABEPRAZOLE (RABEPRAZOLE) [Concomitant]
  21. BUSPIRONE HYDROCHLORIDE [Suspect]
     Indication: POST-TRAUMATIC STRESS DISORDER
     Dosage: 5 MG, TID, ORAL
     Route: 048
     Dates: start: 20040330, end: 20040512
  22. ASPIRIN [Concomitant]
  23. CARBIDOPA/LEVODOPA (CARBIDOPA, LEVODOPA) [Concomitant]
  24. DOCUSATE SODIUM (DOCUSATE SODIUM) [Concomitant]
  25. GUAIFENESIN [Concomitant]
  26. OMEPRAZOLE [Concomitant]
  27. MAGNESIUM HYDROXIDE TAB [Concomitant]
  28. FLUOXETINE HYDROCHLORIDE [Concomitant]

REACTIONS (57)
  - DIZZINESS [None]
  - CARDIAC FAILURE CONGESTIVE [None]
  - HEPATIC ENZYME INCREASED [None]
  - DYSPNOEA [None]
  - OVERDOSE [None]
  - PYREXIA [None]
  - CHEST PAIN [None]
  - RESPIRATORY DISTRESS [None]
  - LACERATION [None]
  - HEPATIC CONGESTION [None]
  - CONGESTIVE CARDIOMYOPATHY [None]
  - GENERAL PHYSICAL HEALTH DETERIORATION [None]
  - ANXIETY [None]
  - RHINALGIA [None]
  - EPISTAXIS [None]
  - SOMNOLENCE [None]
  - VASOCONSTRICTION [None]
  - PERIPHERAL COLDNESS [None]
  - HYPONATRAEMIA [None]
  - PANIC ATTACK [None]
  - LIGAMENT SPRAIN [None]
  - ORTHOPNOEA [None]
  - OEDEMA PERIPHERAL [None]
  - CHEYNE-STOKES RESPIRATION [None]
  - SYNCOPE [None]
  - AFFECT LABILITY [None]
  - FACIAL BONES FRACTURE [None]
  - DELIRIUM [None]
  - CHILLS [None]
  - HYPERHIDROSIS [None]
  - LOSS OF CONSCIOUSNESS [None]
  - CLAVICLE FRACTURE [None]
  - VASOMOTOR RHINITIS [None]
  - CONCUSSION [None]
  - ABDOMINAL DISTENSION [None]
  - POLLAKIURIA [None]
  - LEUKOCYTOSIS [None]
  - PNEUMONIA [None]
  - RENAL FAILURE [None]
  - SUICIDAL IDEATION [None]
  - FATIGUE [None]
  - JAUNDICE [None]
  - ASTHENIA [None]
  - PRODUCTIVE COUGH [None]
  - GAIT DISTURBANCE [None]
  - RHINITIS ALLERGIC [None]
  - SINUS DISORDER [None]
  - HYPERTENSION [None]
  - FALL [None]
  - PRODUCT QUALITY ISSUE [None]
  - HALLUCINATION [None]
  - RESTLESSNESS [None]
  - SINUS HEADACHE [None]
  - VISION BLURRED [None]
  - CONFUSIONAL STATE [None]
  - PRESYNCOPE [None]
  - DEHYDRATION [None]
